FAERS Safety Report 25830493 (Version 1)
Quarter: 2025Q3

REPORT INFORMATION
  Report Type: Spontaneous
  Country: US (occurrence: None)
  Receive Date: 20250919
  Receipt Date: 20250919
  Transmission Date: 20251020
  Serious: Yes (Disabling)
  Sender: FDA-CTU
  Company Number: None

PATIENT
  Age: 62 Year
  Sex: Male
  Weight: 58.5 kg

DRUGS (2)
  1. LEVAQUIN [Suspect]
     Active Substance: LEVOFLOXACIN
     Indication: Upper respiratory tract infection
     Dosage: OTHER QUANTITY : 1 TABLET(S);?FREQUENCY : DAILY;?
     Route: 048
  2. PREDNISONE [Suspect]
     Active Substance: PREDNISONE

REACTIONS (9)
  - Arthropathy [None]
  - Tendon disorder [None]
  - Frequent bowel movements [None]
  - Joint noise [None]
  - Flatulence [None]
  - Urine abnormality [None]
  - Fatigue [None]
  - Urinary tract disorder [None]
  - Pollakiuria [None]

NARRATIVE: CASE EVENT DATE: 20250606
